FAERS Safety Report 9395974 (Version 3)
Quarter: 2013Q3

REPORT INFORMATION
  Report Type: Spontaneous
  Country: US (occurrence: US)
  Receive Date: 20130711
  Receipt Date: 20130729
  Transmission Date: 20140515
  Serious: No
  Sender: FDA-Public Use
  Company Number: US-PFIZER INC-2013201843

PATIENT
  Sex: Male

DRUGS (8)
  1. NEURONTIN [Suspect]
     Dosage: UNK
  2. VIAGRA [Suspect]
     Dosage: UNK
  3. CARDURA [Suspect]
     Dosage: UNK
  4. HYDROCHLOROTHIAZIDE [Concomitant]
     Dosage: UNK
  5. MICARDIS [Concomitant]
     Dosage: UNK
  6. CRESTOR [Concomitant]
     Dosage: UNK
  7. TRAMADOL [Concomitant]
     Dosage: UNK
  8. CELEBREX [Suspect]
     Dosage: UNK

REACTIONS (4)
  - Prostatomegaly [Unknown]
  - Benign prostatic hyperplasia [Unknown]
  - Malaise [Unknown]
  - Hypertension [Unknown]
